FAERS Safety Report 24195132 (Version 1)
Quarter: 2024Q3

REPORT INFORMATION
  Report Type: Spontaneous
  Country: US (occurrence: US)
  Receive Date: 20240809
  Receipt Date: 20240809
  Transmission Date: 20241016
  Serious: No
  Sender: ANI
  Company Number: US-ANIPHARMA-2024-US-033205

PATIENT
  Sex: Female
  Weight: 74.39 kg

DRUGS (16)
  1. CORTICOTROPIN [Suspect]
     Active Substance: CORTICOTROPIN
     Indication: Multiple sclerosis
     Dosage: 80 UNITS SUBCUTANEOUS, DAILY 10 DAYS
     Route: 058
     Dates: start: 20240531
  2. AMPYRA [Concomitant]
     Active Substance: DALFAMPRIDINE
  3. MINERALS\VITAMINS [Concomitant]
     Active Substance: MINERALS\VITAMINS
  4. LINZESS [Concomitant]
     Active Substance: LINACLOTIDE
  5. PRILOSEC [Concomitant]
     Active Substance: OMEPRAZOLE MAGNESIUM
  6. ALLERGY RELIEF [Concomitant]
  7. NEURONTIN [Concomitant]
     Active Substance: GABAPENTIN
  8. NORVASC [Concomitant]
     Active Substance: AMLODIPINE BESYLATE
  9. TERIFLUNOMIDE [Concomitant]
     Active Substance: TERIFLUNOMIDE
  10. DALFAMPRIDINE [Concomitant]
     Active Substance: DALFAMPRIDINE
  11. AUBAGIO [Concomitant]
     Active Substance: TERIFLUNOMIDE
  12. ATENOLOL [Concomitant]
     Active Substance: ATENOLOL
  13. HYDROCHLOROTHIAZIDE [Concomitant]
     Active Substance: HYDROCHLOROTHIAZIDE
  14. TYLENOL [Concomitant]
     Active Substance: ACETAMINOPHEN
  15. ALEVE [Concomitant]
     Active Substance: NAPROXEN SODIUM
  16. CHOLECALCIFEROL [Concomitant]
     Active Substance: CHOLECALCIFEROL

REACTIONS (1)
  - Drug ineffective [Unknown]
